FAERS Safety Report 15586868 (Version 1)
Quarter: 2018Q4

REPORT INFORMATION
  Report Type: Spontaneous
  Country: US (occurrence: US)
  Receive Date: 20181102
  Receipt Date: 20181102
  Transmission Date: 20190205
  Serious: Yes (Life-Threatening, Other)
  Sender: FDA-Public Use
  Company Number: None

PATIENT
  Age: 61 Year
  Sex: Female
  Weight: 105.23 kg

DRUGS (14)
  1. TENORMIN [Concomitant]
     Active Substance: ATENOLOL
  2. ZOFRAN [Concomitant]
     Active Substance: ONDANSETRON HYDROCHLORIDE
  3. NITROGLYCERIN. [Concomitant]
     Active Substance: NITROGLYCERIN
  4. ULTRAM [Concomitant]
     Active Substance: TRAMADOL HYDROCHLORIDE
  5. CEFTIN [Concomitant]
     Active Substance: CEFUROXIME AXETIL
  6. LASIX [Concomitant]
     Active Substance: FUROSEMIDE
  7. CETIRIZINE COMMON BRAND ZYRTEC [Suspect]
     Active Substance: CETIRIZINE HYDROCHLORIDE
     Indication: MULTIPLE ALLERGIES
     Dosage: ?          QUANTITY:10 MG MILLIGRAM(S);?
     Route: 048
     Dates: start: 20180705, end: 20181024
  8. BUSPAR [Concomitant]
     Active Substance: BUSPIRONE HYDROCHLORIDE
  9. PREDNISONE. [Concomitant]
     Active Substance: PREDNISONE
  10. PROTONIX [Concomitant]
     Active Substance: PANTOPRAZOLE SODIUM
  11. SINGULAIR [Concomitant]
     Active Substance: MONTELUKAST SODIUM
  12. FLONASE [Concomitant]
     Active Substance: FLUTICASONE PROPIONATE
  13. ZINC. [Concomitant]
     Active Substance: ZINC
  14. ALBUTEROL VETOLIN INHALER [Concomitant]

REACTIONS (4)
  - Dyspnoea [None]
  - Pharyngeal oedema [None]
  - Dust allergy [None]
  - Reaction to preservatives [None]

NARRATIVE: CASE EVENT DATE: 20180705
